FAERS Safety Report 19689572 (Version 2)
Quarter: 2021Q3

REPORT INFORMATION
  Report Type: Spontaneous
  Country: JP (occurrence: JP)
  Receive Date: 20210811
  Receipt Date: 20210819
  Transmission Date: 20211014
  Serious: Yes (Hospitalization)
  Sender: FDA-Public Use
  Company Number: JP-ASTRAZENECA-2021A671023

PATIENT
  Age: 81 Year
  Sex: Female

DRUGS (12)
  1. VESICARE [Concomitant]
     Active Substance: SOLIFENACIN SUCCINATE
     Dosage: AFTER SUPPER
     Route: 048
  2. CELECOXIB. [Concomitant]
     Active Substance: CELECOXIB
     Dosage: AFTER BREAKFAST AND SUPPER
     Route: 048
  3. LORATADINE. [Concomitant]
     Active Substance: LORATADINE
     Dosage: BEFORE BEDTIME
     Route: 048
  4. NIFEDIPINE CR [Concomitant]
     Active Substance: NIFEDIPINE
     Dosage: AFTER BREAKFAST AND SUPPER
     Route: 048
  5. BENIDIPINE HYDROCHLORIDE [Concomitant]
     Active Substance: BENIDIPINE HYDROCHLORIDE
     Dosage: AFTER BREAKFAST AND SUPPER
     Route: 048
  6. VESICARE [Concomitant]
     Active Substance: SOLIFENACIN SUCCINATE
     Dosage: BEFORE BEDTIME
     Route: 048
  7. TRIAZOLAM. [Concomitant]
     Active Substance: TRIAZOLAM
     Dosage: BEFORE BEDTIME
  8. CEFTRIAXONE NA [Concomitant]
     Active Substance: CEFTRIAXONE
     Route: 042
  9. NEXIUM [Suspect]
     Active Substance: ESOMEPRAZOLE MAGNESIUM
     Indication: GASTROOESOPHAGEAL REFLUX DISEASE
     Route: 048
     Dates: start: 20210703
  10. DOMPERIDONE [Suspect]
     Active Substance: DOMPERIDONE
     Dosage: BEFORE EVERY MEAL
     Route: 048
  11. ELDECALCITOL [Concomitant]
     Active Substance: ELDECALCITOL
     Dosage: AFTER BREAKFAST
     Route: 048
  12. LORATADINE OD [Concomitant]
     Dosage: AFTER SUPPER
     Route: 048

REACTIONS (3)
  - Parkinsonism [Unknown]
  - Insomnia [Unknown]
  - Constipation [Unknown]

NARRATIVE: CASE EVENT DATE: 2021
